FAERS Safety Report 20741850 (Version 1)
Quarter: 2022Q2

REPORT INFORMATION
  Report Type: Spontaneous
  Country: CA (occurrence: CA)
  Receive Date: 20220423
  Receipt Date: 20220423
  Transmission Date: 20220721
  Serious: Yes (Life-Threatening, Hospitalization, Other)
  Sender: FDA-Public Use
  Company Number: CA-NOVARTISPH-NVSC2022CA093740

PATIENT
  Age: 63 Year
  Sex: Female
  Weight: 72.575 kg

DRUGS (4)
  1. VALSARTAN [Suspect]
     Active Substance: VALSARTAN
     Indication: Hypertension
     Dosage: 2 DOSAGE FORM, BID (2 EVERY ONE DAYS)
     Route: 048
  2. VALSARTAN [Suspect]
     Active Substance: VALSARTAN
     Dosage: 1 DOSAGE FORM, QD (1 EVERY 1 DAYS)
     Route: 048
  3. CANDESARTAN [Concomitant]
     Active Substance: CANDESARTAN
     Indication: Product used for unknown indication
     Dosage: UNK
     Route: 065
  4. HYDROCHLOROTHIAZIDE [Concomitant]
     Active Substance: HYDROCHLOROTHIAZIDE
     Indication: Product used for unknown indication
     Dosage: UNK
     Route: 065

REACTIONS (6)
  - Renal cell carcinoma stage I [Unknown]
  - Renal neoplasm [Unknown]
  - Dysphonia [Unknown]
  - Pain [Unknown]
  - Speech disorder [Unknown]
  - Back pain [Unknown]
